FAERS Safety Report 5300230-0 (Version None)
Quarter: 2007Q2

REPORT INFORMATION
  Report Type: 
  Country: None (occurrence: None)
  Receive Date: 20070411
  Receipt Date: 20070330
  Transmission Date: 20071010
  Serious: Yes (Hospitalization, Other)
  Sender: FDA-Public Use
  Company Number: VISP-PR-0703S-0132

PATIENT
  Age: 78 Year
  Sex: Male
  Weight: 58 kg

DRUGS (2)
  1. VISIPAQUE [Suspect]
     Indication: PARIETAL CELL ANTIBODY
     Dosage: 150 ML, SINGLE DOSE, I.V.
     Route: 042
     Dates: start: 20070307, end: 20070307
  2. VISIPAQUE [Suspect]

REACTIONS (8)
  - CHEST DISCOMFORT [None]
  - CHILLS [None]
  - NAUSEA [None]
  - PAIN [None]
  - PYREXIA [None]
  - URINE OUTPUT DECREASED [None]
  - URTICARIA [None]
  - VOMITING [None]
